FAERS Safety Report 6394224-4 (Version None)
Quarter: 2009Q4

REPORT INFORMATION
  Report Type: 
  Country: None (occurrence: None)
  Receive Date: 20091008
  Receipt Date: 20090924
  Transmission Date: 20100525
  Serious: Yes (Hospitalization)
  Sender: FDA-Public Use
  Company Number: SE-GENENTECH-291357

PATIENT
  Age: 75 Year
  Sex: Female

DRUGS (7)
  1. MABTHERA [Suspect]
     Indication: RHEUMATOID ARTHRITIS
     Dosage: 1 G, UNK
     Route: 042
     Dates: start: 20090507, end: 20090607
  2. ALVEDON [Concomitant]
     Indication: DRUG USE FOR UNKNOWN INDICATION
  3. TRADOL [Concomitant]
     Indication: DRUG USE FOR UNKNOWN INDICATION
  4. STILNOCT [Concomitant]
     Indication: DRUG USE FOR UNKNOWN INDICATION
  5. BEHEPAN [Concomitant]
     Indication: DRUG USE FOR UNKNOWN INDICATION
  6. PREDNISOLONE [Concomitant]
     Indication: DRUG USE FOR UNKNOWN INDICATION
  7. KALCIPOS-D [Concomitant]
     Indication: DRUG USE FOR UNKNOWN INDICATION

REACTIONS (1)
  - DIVERTICULITIS [None]
